FAERS Safety Report 23659524 (Version 1)
Quarter: 2024Q1

REPORT INFORMATION
  Report Type: Report from Study
  Country: US (occurrence: US)
  Receive Date: 20240321
  Receipt Date: 20240321
  Transmission Date: 20240410
  Serious: Yes (Other)
  Sender: FDA-Public Use
  Company Number: US-TEVA-VS-3170833

PATIENT
  Age: 35 Year
  Sex: Female

DRUGS (1)
  1. AUSTEDO [Suspect]
     Active Substance: DEUTETRABENAZINE
     Indication: Tardive dyskinesia
     Dosage: TAKE 1 TABLET BY MOUTH EVERY NIGHT AT BEDTIME FOR 15 DAYS, THEN 1 TABLET TWICE A DAY THEREAFTER
     Route: 048

REACTIONS (2)
  - Bipolar disorder [Unknown]
  - Anger [Unknown]
